FAERS Safety Report 5797098-5 (Version None)
Quarter: 2008Q3

REPORT INFORMATION
  Report Type: 
  Country: None (occurrence: None)
  Receive Date: 20080701
  Receipt Date: 20080619
  Transmission Date: 20090109
  Serious: Yes (Other)
  Sender: FDA-Public Use
  Company Number: JP-ASTRAZENECA-2008SE03267

PATIENT
  Age: 72 Year
  Sex: Male

DRUGS (11)
  1. BLOPRESS TABLETS 2 [Suspect]
     Indication: HYPERTENSION
     Route: 048
     Dates: start: 20020101
  2. BASEN [Concomitant]
     Route: 048
  3. CARVEDILOL [Concomitant]
     Route: 048
  4. WARFARIN SODIUM [Concomitant]
     Route: 048
  5. ALDACTONE [Concomitant]
     Route: 048
  6. MEVALOTIN [Concomitant]
     Route: 048
  7. ITOROL [Concomitant]
     Route: 048
  8. SELBEX [Concomitant]
     Route: 048
  9. LOXONIN [Concomitant]
     Route: 065
  10. HALCION [Concomitant]
     Route: 048
  11. EUGLUCON [Concomitant]
     Route: 048

REACTIONS (1)
  - INTERSTITIAL LUNG DISEASE [None]
